FAERS Safety Report 9741738 (Version 4)
Quarter: 2014Q1

REPORT INFORMATION
  Report Type: Spontaneous
  Country: JP (occurrence: JP)
  Receive Date: 20131210
  Receipt Date: 20140226
  Transmission Date: 20141002
  Serious: Yes (Other)
  Sender: FDA-Public Use
  Company Number: JP-009507513-1312JPN003547

PATIENT
  Age: 71 Year
  Sex: Female
  Weight: 60 kg

DRUGS (15)
  1. GASTER [Suspect]
     Indication: PROPHYLAXIS
     Dosage: 20 MG, QW
     Route: 041
     Dates: start: 20121012, end: 20130125
  2. GASTER [Suspect]
     Indication: PREMEDICATION
     Dosage: 20 MG, QW
     Route: 041
     Dates: start: 20130809, end: 20131129
  3. GASTER [Suspect]
     Indication: PROPHYLAXIS
     Dosage: 20 MG, BID
     Route: 048
     Dates: start: 20131205, end: 20131205
  4. DECADRON PHOSPHATE INJECTION [Concomitant]
     Indication: PREMEDICATION
     Dosage: UNK
     Dates: start: 20121214
  5. KYTRIL [Concomitant]
     Dosage: UNK
     Dates: start: 20130809
  6. METHYCOBAL [Concomitant]
     Dosage: UNK
     Dates: start: 20090810
  7. CRESTOR [Concomitant]
     Dosage: UNK
     Dates: start: 20121001
  8. CELESTAMINE COMBINATION [Concomitant]
     Dosage: UNK, PER ORAL NOS
     Route: 048
  9. SHA-KANZO-TO [Concomitant]
     Dosage: HERBAL EXTRACT NOS, PER ORAL NOS.
     Route: 048
     Dates: start: 20090810
  10. TAXOL [Concomitant]
     Dosage: UNK
     Route: 065
     Dates: start: 20130809
  11. CARBOPLATIN [Concomitant]
     Dosage: UNK
     Route: 065
     Dates: start: 20130809
  12. ZOFRAN ZYDIS [Concomitant]
     Dosage: UNK
     Route: 048
     Dates: start: 20130810
  13. PRIMPERAN [Concomitant]
     Dosage: UNK
     Route: 048
     Dates: start: 20130810
  14. WARFARIN [Concomitant]
     Dosage: UNK
     Route: 048
     Dates: start: 20090818
  15. RESTAMIN [Concomitant]
     Dosage: UNK
     Dates: start: 20130809

REACTIONS (11)
  - Altered state of consciousness [Recovered/Resolved]
  - Hot flush [Recovered/Resolved]
  - Cold sweat [Recovered/Resolved]
  - Malaise [Recovered/Resolved]
  - Diarrhoea [Recovered/Resolved]
  - Nausea [Recovered/Resolved]
  - Vomiting [Recovered/Resolved]
  - Off label use [Unknown]
  - Malaise [Recovered/Resolved]
  - Diarrhoea [Recovered/Resolved]
  - Abdominal pain [Recovered/Resolved]
